FAERS Safety Report 16358050 (Version 1)
Quarter: 2019Q2

REPORT INFORMATION
  Report Type: Spontaneous
  Country: US (occurrence: US)
  Receive Date: 20190418
  Receipt Date: 20190418
  Transmission Date: 20190711
  Serious: Yes (Hospitalization)
  Sender: FDA-Public Use
  Company Number: None

PATIENT
  Age: 67 Year
  Sex: Female

DRUGS (18)
  1. FERROUS SULFATE. [Concomitant]
     Active Substance: FERROUS SULFATE
  2. BUPROPRION [Concomitant]
     Active Substance: BUPROPION
  3. POTASSIUM CHLORIDE. [Concomitant]
     Active Substance: POTASSIUM CHLORIDE
  4. ACETAZOLAMIDE. [Concomitant]
     Active Substance: ACETAZOLAMIDE
  5. FISH OIL [Concomitant]
     Active Substance: FISH OIL
  6. CALCIUM 600-VIT D3 [Concomitant]
  7. SENNA GEN [Concomitant]
     Active Substance: SENNOSIDES
  8. OPSUMIT [Suspect]
     Active Substance: MACITENTAN
     Indication: PULMONARY ARTERIAL HYPERTENSION
     Route: 048
     Dates: start: 2014
  9. SIMVASTATIN. [Concomitant]
     Active Substance: SIMVASTATIN
  10. VITAMIN D3 [Concomitant]
     Active Substance: CHOLECALCIFEROL
  11. OMEPRAZOLE. [Concomitant]
     Active Substance: OMEPRAZOLE
  12. DIGOXIN. [Concomitant]
     Active Substance: DIGOXIN
  13. GABAPENTIN. [Concomitant]
     Active Substance: GABAPENTIN
  14. MS CONTIN [Concomitant]
     Active Substance: MORPHINE SULFATE
  15. SPIRONOLACTONE. [Concomitant]
     Active Substance: SPIRONOLACTONE
  16. FUROSEMIDE. [Concomitant]
     Active Substance: FUROSEMIDE
  17. SILDENAFIL. [Concomitant]
     Active Substance: SILDENAFIL
  18. SERTRALINE [Concomitant]
     Active Substance: SERTRALINE HYDROCHLORIDE

REACTIONS (4)
  - Chronic obstructive pulmonary disease [None]
  - Respiratory failure [None]
  - Dyspnoea [None]
  - Productive cough [None]

NARRATIVE: CASE EVENT DATE: 20190322
